FAERS Safety Report 4808187-3 (Version None)
Quarter: 2005Q4

REPORT INFORMATION
  Report Type: 
  Country: None (occurrence: None)
  Receive Date: 20051021
  Receipt Date: 20020522
  Transmission Date: 20060501
  Serious: Yes (Other)
  Sender: FDA-Public Use
  Company Number: US_020584730

PATIENT
  Age: 24 Year
  Sex: Male
  Weight: 56 kg

DRUGS (8)
  1. ZYPREXA [Suspect]
     Indication: COMPULSIONS
     Dosage: 20 MG/DAY
     Dates: start: 20010703
  2. LUVOX [Concomitant]
  3. LOPODIN (ZOTEPINE) [Concomitant]
  4. IMPROMEN (BROMPERIDOL) [Concomitant]
  5. SENNOSIDE A [Concomitant]
  6. SELBEX (TEPRENONE) [Concomitant]
  7. BICAMOL (BIPERIDEN HYDROCHLORIDE) [Concomitant]
  8. VITAMIN A [Concomitant]

REACTIONS (9)
  - BLOOD ALKALINE PHOSPHATASE INCREASED [None]
  - BLOOD PRESSURE SYSTOLIC INCREASED [None]
  - FALL [None]
  - GRAND MAL CONVULSION [None]
  - HEART RATE INCREASED [None]
  - MOUTH HAEMORRHAGE [None]
  - MYDRIASIS [None]
  - SCRATCH [None]
  - SOMNOLENCE [None]
